FAERS Safety Report 4478022-4 (Version None)
Quarter: 2004Q3

REPORT INFORMATION
  Report Type: 
  Country: None (occurrence: None)
  Receive Date: 20040923
  Receipt Date: 20040803
  Transmission Date: 20050211
  Serious: No
  Sender: FDA-Public Use
  Company Number: USA040874430

PATIENT
  Age: 62 Year
  Sex: Female
  Weight: 56 kg

DRUGS (8)
  1. FORTEO [Suspect]
     Indication: BONE DISORDER
     Dosage: 20 UG/1 DAY
     Dates: start: 20040501
  2. EVISTA [Suspect]
  3. AVAPRO [Concomitant]
  4. MAXZIDE [Concomitant]
  5. TENORMIN (ATENOLOL EG) [Concomitant]
  6. PAXIL [Concomitant]
  7. SYNTHROID [Concomitant]
  8. ZOCOR [Concomitant]

REACTIONS (4)
  - BLOOD CALCIUM INCREASED [None]
  - BLOOD CHOLESTEROL INCREASED [None]
  - FEELING HOT [None]
  - HOT FLUSH [None]
